FAERS Safety Report 9664534 (Version 1)
Quarter: 2013Q4

REPORT INFORMATION
  Report Type: Spontaneous
  Country: US (occurrence: US)
  Receive Date: 20131101
  Receipt Date: 20131101
  Transmission Date: 20140711
  Serious: No
  Sender: FDA-Public Use
  Company Number: US-BAYER-2013-130340

PATIENT
  Age: 45 Year
  Sex: Female

DRUGS (1)
  1. CLIMARA [Suspect]
     Indication: MENOPAUSE
     Dosage: 0.1MG/DAY
     Route: 062
     Dates: start: 20130717

REACTIONS (4)
  - Drug dose omission [None]
  - Product adhesion issue [None]
  - Gastrooesophageal reflux disease [None]
  - Aphonia [None]
